FAERS Safety Report 19763945 (Version 2)
Quarter: 2021Q4

REPORT INFORMATION
  Report Type: Report from Study
  Country: US (occurrence: US)
  Receive Date: 20210830
  Receipt Date: 20211123
  Transmission Date: 20220303
  Serious: Yes (Other)
  Sender: FDA-Public Use
  Company Number: US-NOVARTISPH-NVSC2021US189851

PATIENT
  Sex: Male

DRUGS (1)
  1. KESIMPTA [Suspect]
     Active Substance: OFATUMUMAB
     Indication: Relapsing multiple sclerosis
     Dosage: 20 MG, QMO (BENEATH THE SKIN, VIA INJECTION)
     Route: 058
     Dates: start: 20210607

REACTIONS (11)
  - Choking [Unknown]
  - Nervous system disorder [Recovered/Resolved with Sequelae]
  - Gait disturbance [Unknown]
  - Dysphagia [Unknown]
  - Memory impairment [Unknown]
  - Hypoaesthesia [Unknown]
  - Altered visual depth perception [Unknown]
  - Balance disorder [Unknown]
  - Neck pain [Recovered/Resolved with Sequelae]
  - Headache [Recovered/Resolved with Sequelae]
  - Drug ineffective [Unknown]
